FAERS Safety Report 8484129-7 (Version None)
Quarter: 2012Q3

REPORT INFORMATION
  Report Type: 
  Country: None (occurrence: None)
  Receive Date: 20120703
  Receipt Date: 20120625
  Transmission Date: 20120928
  Serious: Yes (Other)
  Sender: FDA-Public Use
  Company Number: US-BAYER-2012-063461

PATIENT
  Age: 37 Year
  Sex: Female
  Weight: 96.599 kg

DRUGS (9)
  1. VITAMIN D [Concomitant]
     Dosage: 1.25 MG, UNK
     Route: 048
     Dates: start: 20101012
  2. YASMIN [Suspect]
     Indication: CONTRACEPTION
  3. TOPRAMATE [Concomitant]
     Dosage: 100 MG, UNK
     Route: 048
     Dates: start: 20110104
  4. ACETAMINOPHEN W/ PROPOXYPHENE HCL [Concomitant]
     Dosage: 100-650MG
     Route: 048
     Dates: start: 20101013
  5. PROMETHAZINE DM [Concomitant]
     Dosage: UNK
     Route: 048
     Dates: start: 20101210
  6. SULFAMETHOXAZOLE AND TRIMETHOPRIM [Concomitant]
     Dosage: UNK
     Route: 048
     Dates: start: 20101210
  7. ZOLPIDEM TARTRATE [Concomitant]
  8. DROSPIRENONE AND ETHINYL ESTRADIOL [Suspect]
  9. AMBIEN [Concomitant]
     Indication: NECK PAIN
     Dosage: 10 MG, QHS PRN
     Route: 048
     Dates: start: 20110204

REACTIONS (1)
  - DEEP VEIN THROMBOSIS [None]
